FAERS Safety Report 4383998-X (Version None)
Quarter: 2004Q2

REPORT INFORMATION
  Report Type: 
  Country: None (occurrence: None)
  Receive Date: 20040621
  Receipt Date: 20040811
  Transmission Date: 20050107
  Serious: Yes (Life-Threatening)
  Sender: FDA-Public Use
  Company Number: M2003.5130/0119-03-119-GBR-DICLOFENAC

PATIENT
  Age: 35 Year
  Sex: Female

DRUGS (2)
  1. DICLOFENAC 50MG, UNKNOWN MANUFACTURER [Suspect]
     Indication: BACK PAIN
     Dosage: 50MG, ORAL
     Route: 048
     Dates: start: 20030712
  2. ERYTHROMYCIN [Concomitant]

REACTIONS (2)
  - RESPIRATORY RATE DECREASED [None]
  - SOMNOLENCE [None]
